FAERS Safety Report 19423733 (Version 1)
Quarter: 2021Q2

REPORT INFORMATION
  Report Type: Spontaneous
  Country: US (occurrence: US)
  Receive Date: 20210616
  Receipt Date: 20210616
  Transmission Date: 20210717
  Serious: No
  Sender: FDA-Public Use
  Company Number: US-PFIZER INC-2020190983

PATIENT
  Age: 80 Year
  Sex: Female
  Weight: 79.38 kg

DRUGS (3)
  1. LYRICA [Suspect]
     Active Substance: PREGABALIN
     Indication: RADICULOPATHY
     Dosage: 125 MG, DAILY, (1 CAP IN AM,1CAP AT NOON,1 CAP IN PM, 2 CAP IN HS (TAKE AT BEDTIME)
     Route: 048
  2. LYRICA [Suspect]
     Active Substance: PREGABALIN
     Indication: PAIN
     Dosage: 50 MG
  3. LYRICA [Suspect]
     Active Substance: PREGABALIN
     Indication: NEUROPATHY PERIPHERAL
     Dosage: 25 MG

REACTIONS (8)
  - Dizziness [Unknown]
  - Eye disorder [Unknown]
  - Drug ineffective [Unknown]
  - Nausea [Unknown]
  - Hypoacusis [Unknown]
  - Disorientation [Unknown]
  - Diarrhoea [Unknown]
  - Intentional product misuse [Unknown]
